FAERS Safety Report 5861808-9 (Version None)
Quarter: 2008Q3

REPORT INFORMATION
  Report Type: 
  Country: None (occurrence: None)
  Receive Date: 20080827
  Receipt Date: 20080703
  Transmission Date: 20090109
  Serious: No
  Sender: FDA-Public Use
  Company Number: US-ABBOTT-08P-163-0460712-00

PATIENT
  Sex: Male
  Weight: 72.64 kg

DRUGS (8)
  1. COATED PDS [Suspect]
     Indication: HIGH DENSITY LIPOPROTEIN DECREASED
     Dosage: AT BEDTIME
     Route: 048
     Dates: start: 20080612
  2. COATED PDS [Suspect]
     Indication: LOW DENSITY LIPOPROTEIN INCREASED
  3. ATORVASTATIN CALCIUM [Concomitant]
     Indication: LOW DENSITY LIPOPROTEIN INCREASED
     Route: 048
  4. ATORVASTATIN CALCIUM [Concomitant]
     Indication: HIGH DENSITY LIPOPROTEIN DECREASED
  5. ATENOLOL [Concomitant]
     Indication: DRUG USE FOR UNKNOWN INDICATION
     Route: 048
  6. NITROGLYCERIN [Concomitant]
     Indication: DRUG USE FOR UNKNOWN INDICATION
     Route: 048
  7. PAROXETINE HCL [Concomitant]
     Indication: ANXIOLYTIC THERAPY
     Route: 048
  8. PIOGLITAZONE [Concomitant]
     Indication: DIABETES MELLITUS
     Route: 048

REACTIONS (3)
  - BLOOD GLUCOSE INCREASED [None]
  - FEELING HOT [None]
  - FLUSHING [None]
